FAERS Safety Report 6306465-2 (Version None)
Quarter: 2009Q3

REPORT INFORMATION
  Report Type: 
  Country: None (occurrence: None)
  Receive Date: 20090812
  Receipt Date: 20090804
  Transmission Date: 20100115
  Serious: Yes (Disabling, Other)
  Sender: FDA-Public Use
  Company Number: NO-TEVA-204884ISR

PATIENT
  Sex: Male

DRUGS (5)
  1. CARBOPLATIN [Suspect]
     Indication: TESTIS CANCER
     Route: 042
     Dates: start: 20081124, end: 20090301
  2. CISPLATIN [Suspect]
     Indication: TESTIS CANCER
     Route: 042
     Dates: start: 20081104, end: 20081101
  3. ETOPOSIDE [Suspect]
     Indication: TESTIS CANCER
     Route: 042
     Dates: start: 20081104, end: 20090310
  4. PREDNISOLONE [Suspect]
     Indication: DRUG USE FOR UNKNOWN INDICATION
  5. BLEOMYCIN SULFATE [Suspect]
     Indication: TESTIS CANCER
     Route: 042
     Dates: start: 20081104

REACTIONS (1)
  - PULMONARY FIBROSIS [None]
